FAERS Safety Report 8615819-0 (Version None)
Quarter: 2012Q3

REPORT INFORMATION
  Report Type: 
  Country: None (occurrence: None)
  Receive Date: 20120823
  Receipt Date: 20120816
  Transmission Date: 20120928
  Serious: Yes (Hospitalization, Other)
  Sender: FDA-Public Use
  Company Number: PHHY2012GB071068

PATIENT
  Age: 26 Year
  Sex: Female
  Weight: 39 kg

DRUGS (4)
  1. DOXYCYCLINE HCL [Suspect]
     Dosage: 100 MG
     Route: 048
     Dates: start: 20120728
  2. ERYTHROMYCIN [Concomitant]
     Indication: INFECTION
     Dosage: 4 DF FOR 5 DAYS
     Route: 048
     Dates: start: 20120613
  3. FORTISIP [Concomitant]
     Dosage: 1 DF
  4. FLUOXETINE HCL [Concomitant]

REACTIONS (5)
  - CONFUSIONAL STATE [None]
  - DYSKINESIA [None]
  - GLOMERULAR FILTRATION RATE INCREASED [None]
  - HYPOTENSION [None]
  - MALAISE [None]
